FAERS Safety Report 7327193-0 (Version None)
Quarter: 2011Q1

REPORT INFORMATION
  Report Type: 
  Country: None (occurrence: None)
  Receive Date: 20110302
  Receipt Date: 20110224
  Transmission Date: 20110831
  Serious: Yes (Other)
  Sender: FDA-Public Use
  Company Number: US-PFIZER INC-2011041031

PATIENT
  Sex: Female
  Weight: 68.027 kg

DRUGS (13)
  1. CELEBREX [Concomitant]
     Dosage: 100 MG, 1X/DAY
  2. LORAZEPAM [Concomitant]
     Dosage: 1 MG, 4X/DAY
  3. REMERON [Concomitant]
     Dosage: 45 MG, 1X/DAY
  4. LYRICA [Suspect]
     Indication: FIBROMYALGIA
     Dosage: 25 MG, 1X/DAY
     Dates: start: 20101101
  5. LYRICA [Suspect]
     Dosage: 300 MG, 1X/DAY
     Route: 048
     Dates: start: 20100101, end: 20110101
  6. OXYCODONE [Concomitant]
     Dosage: 60 MG, 1X/DAY
  7. SEROQUEL [Concomitant]
     Dosage: 200 MG, 1X/DAY
  8. CEFTRIAXONE [Concomitant]
     Dosage: 1000 MG, 1X/DAY
  9. MORPHINE [Concomitant]
     Dosage: 30 MG, 3X/DAY
  10. MINOCYCLINE [Concomitant]
     Dosage: 100 MG, 2X/DAY
  11. EFFEXOR [Concomitant]
     Dosage: 225 MG, 1X/DAY
  12. LYRICA [Suspect]
     Dosage: 75 MG, 1X/DAY
     Dates: start: 20100101
  13. VALTREX [Concomitant]
     Dosage: 500 MG, 2X/DAY

REACTIONS (2)
  - RED BLOOD CELL COUNT DECREASED [None]
  - WEIGHT INCREASED [None]
